FAERS Safety Report 11850186 (Version 1)
Quarter: 2015Q4

REPORT INFORMATION
  Report Type: Spontaneous
  Country: US (occurrence: US)
  Receive Date: 20151218
  Receipt Date: 20151218
  Transmission Date: 20160305
  Serious: No
  Sender: FDA-Public Use
  Company Number: US-JNJFOC-20151117274

PATIENT
  Age: 2 Month
  Sex: Female
  Weight: 4.54 kg

DRUGS (1)
  1. CHILDRENS TYLENOL [Suspect]
     Active Substance: ACETAMINOPHEN
     Indication: IMMUNISATION
     Route: 048
     Dates: start: 20151116

REACTIONS (2)
  - Product use issue [Unknown]
  - Off label use [Unknown]
